FAERS Safety Report 12748733 (Version 2)
Quarter: 2016Q4

REPORT INFORMATION
  Report Type: Spontaneous
  Country: US (occurrence: US)
  Receive Date: 20160915
  Receipt Date: 20161122
  Transmission Date: 20170207
  Serious: No
  Sender: FDA-Public Use
  Company Number: US-ASTRAZENECA-2016SE80637

PATIENT
  Sex: Male
  Weight: 90.7 kg

DRUGS (7)
  1. XARELTO [Concomitant]
     Active Substance: RIVAROXABAN
     Indication: THROMBOSIS PROPHYLAXIS
  2. METOPROLOL ER [Suspect]
     Active Substance: METOPROLOL SUCCINATE
     Indication: CARDIAC DISORDER
     Route: 048
  3. SIMVASTATIN. [Concomitant]
     Active Substance: SIMVASTATIN
     Indication: BLOOD CHOLESTEROL
  4. LOSARTAN. [Concomitant]
     Active Substance: LOSARTAN
     Indication: CARDIAC DISORDER
  5. MEGESTROL [Concomitant]
     Active Substance: MEGESTROL
     Indication: PROSTATE EXAMINATION
  6. SYMBICORT [Suspect]
     Active Substance: BUDESONIDE\FORMOTEROL FUMARATE DIHYDRATE
     Indication: DYSPNOEA
     Dosage: DOSE: 160 MCG / 4.5 MCG, 2 PUFFS, FREQUENCY: TWO TIMES A DAY
     Route: 055
     Dates: start: 201606
  7. LEUPRON INJECTION [Concomitant]
     Indication: PROSTATE CANCER

REACTIONS (4)
  - Speech disorder [Unknown]
  - Device malfunction [Unknown]
  - Product use issue [Unknown]
  - Off label use [Unknown]
